FAERS Safety Report 5605931-2 (Version None)
Quarter: 2008Q1

REPORT INFORMATION
  Report Type: 
  Country: None (occurrence: None)
  Receive Date: 20080123
  Receipt Date: 20080111
  Transmission Date: 20080703
  Serious: Yes (Hospitalization)
  Sender: FDA-Public Use
  Company Number: 006#3#2008-00008

PATIENT
  Age: 79 Year
  Sex: Female

DRUGS (20)
  1. CORDIPATCH-DOSE-UNKNOWN (GLYCERYL TRINITRATE) [Suspect]
     Dosage: N.R; TOPICAL
     Route: 061
     Dates: end: 20071208
  2. AMOXICILLIN AND CLAVULANATE POTASSIUM [Suspect]
     Dosage: ORAL
     Route: 048
     Dates: start: 20071122, end: 20071127
  3. AMOXICILLIN AND CLAVULANATE POTASSIUM [Suspect]
     Dosage: ORAL
     Route: 048
     Dates: end: 20071201
  4. AMOXICILLIN TRIHYDRATE [Suspect]
     Dosage: ORAL
     Route: 048
     Dates: start: 20071127, end: 20071210
  5. ESOMEPRAZOLE MAGNESIUM [Suspect]
     Dosage: ORAL
     Route: 048
     Dates: start: 20071127, end: 20071208
  6. DIGOXIN [Concomitant]
  7. SPIRONOLACTONE, ALTIZIDE (ALTIZIDE, SPIRONOLACTONE) [Concomitant]
  8. ACENOCOUMAROL (ACENOCOUMAROL) [Concomitant]
  9. GLIMEPIRIDE [Concomitant]
  10. METFORMINE (METFORMIN HYDROCHLORIDE) [Concomitant]
  11. ACETAMINOPHEN [Concomitant]
  12. DIOSIMINE (DIOSMIN) [Concomitant]
  13. PERINDOPRIL ERBUMINE [Concomitant]
  14. FUSIDIC ACID (FUSIDATE SODIUM) [Concomitant]
  15. HUMAN PROTHROMBINIC COMPLEX [Concomitant]
  16. SODIUM POLYSTYRENE SULFONATE (SODIUM POLLYSTYRENE SULFONATE) [Concomitant]
  17. PHYTONADIONE [Concomitant]
  18. MACROGOL (MACROGOL) [Concomitant]
  19. FUROSEMIDE [Concomitant]
  20. INSULIN (INSULIN) [Concomitant]

REACTIONS (4)
  - DIALYSIS [None]
  - RENAL FAILURE [None]
  - SEPTIC SHOCK [None]
  - TOXIC EPIDERMAL NECROLYSIS [None]
